FAERS Safety Report 15528572 (Version 1)
Quarter: 2018Q4

REPORT INFORMATION
  Report Type: Report from Study
  Country: US (occurrence: US)
  Receive Date: 20181018
  Receipt Date: 20181018
  Transmission Date: 20190205
  Serious: No
  Sender: FDA-Public Use
  Company Number: US-AMGEN-USASL2018139249

PATIENT
  Sex: Female

DRUGS (1)
  1. REPATHA [Suspect]
     Active Substance: EVOLOCUMAB
     Indication: LIPIDS ABNORMAL
     Dosage: 420 MG, QMO
     Route: 065

REACTIONS (4)
  - Dry mouth [Unknown]
  - Device difficult to use [Unknown]
  - Pain in extremity [Unknown]
  - Back pain [Unknown]
